FAERS Safety Report 11317393 (Version 2)
Quarter: 2015Q4

REPORT INFORMATION
  Report Type: Spontaneous
  Country: US (occurrence: US)
  Receive Date: 20150728
  Receipt Date: 20151113
  Transmission Date: 20160304
  Serious: Yes (Death, Other)
  Sender: FDA-Public Use
  Company Number: US-ASTRAZENECA-2014SE98969

PATIENT
  Age: 27101 Day
  Sex: Male
  Weight: 103.9 kg

DRUGS (8)
  1. BYETTA [Suspect]
     Active Substance: EXENATIDE
     Indication: TYPE 2 DIABETES MELLITUS
     Route: 065
     Dates: start: 20070412, end: 20130114
  2. ADVAIR HFA [Concomitant]
     Active Substance: FLUTICASONE PROPIONATE\SALMETEROL XINAFOATE
     Dosage: (250/50 MG) TABLET
     Route: 048
  3. PLAVIX [Concomitant]
     Active Substance: CLOPIDOGREL BISULFATE
  4. AMLODIPINE [Concomitant]
     Active Substance: AMLODIPINE BESYLATE
     Route: 048
  5. ATORVASTATIN [Concomitant]
     Active Substance: ATORVASTATIN
     Route: 048
  6. BYETTA [Suspect]
     Active Substance: EXENATIDE
     Indication: TYPE 2 DIABETES MELLITUS
     Dosage: 10MCG/0.04 DOSE
     Route: 065
     Dates: start: 20090102
  7. METFORMIN [Concomitant]
     Active Substance: METFORMIN HYDROCHLORIDE
  8. COMPAZINE [Concomitant]
     Active Substance: PROCHLORPERAZINE MALEATE
     Route: 048

REACTIONS (7)
  - Metastases to bone [Unknown]
  - Brain cancer metastatic [Unknown]
  - Malignant neoplasm progression [Unknown]
  - Pancreatic carcinoma metastatic [Fatal]
  - Large intestine benign neoplasm [Unknown]
  - Skin cancer [Unknown]
  - Colon adenoma [Unknown]

NARRATIVE: CASE EVENT DATE: 20121218
